FAERS Safety Report 11112203 (Version 1)
Quarter: 2015Q2

REPORT INFORMATION
  Report Type: Spontaneous
  Country: US (occurrence: None)
  Receive Date: 20150513
  Receipt Date: 20150513
  Transmission Date: 20150821
  Serious: No
  Sender: FDA-Public Use
  Company Number: None

PATIENT
  Age: 57 Year
  Sex: Male

DRUGS (2)
  1. ENBREL [Suspect]
     Active Substance: ETANERCEPT
     Indication: RHEUMATOID ARTHRITIS
     Dosage: ENBREL 50MG  WEEKLY  SUBCUTANEOUSLY
     Route: 058
     Dates: start: 20150128
  2. ENBREL [Suspect]
     Active Substance: ETANERCEPT
     Indication: PSORIATIC ARTHROPATHY
     Dosage: ENBREL 50MG  WEEKLY  SUBCUTANEOUSLY
     Route: 058
     Dates: start: 20150128

REACTIONS (1)
  - Rash [None]
